FAERS Safety Report 19805011 (Version 2)
Quarter: 2021Q3

REPORT INFORMATION
  Report Type: Report from Study
  Country: US (occurrence: US)
  Receive Date: 20210908
  Receipt Date: 20210911
  Transmission Date: 20211014
  Serious: Yes (Death, Hospitalization)
  Sender: FDA-Public Use
  Company Number: US-AMGEN-USACT2020084408

PATIENT
  Age: 69 Year
  Sex: Female
  Weight: 73.8 kg

DRUGS (29)
  1. CRESTOR [Concomitant]
     Active Substance: ROSUVASTATIN CALCIUM
     Indication: DYSLIPIDAEMIA
     Dosage: 40 MILLIGRAM
     Dates: start: 20190620
  2. ISOSORBIDE MONONITRATE. [Concomitant]
     Active Substance: ISOSORBIDE MONONITRATE
     Dosage: 30 MILLIGRAM
     Dates: start: 20180723
  3. MAGNESIUM [Concomitant]
     Active Substance: MAGNESIUM
     Dosage: 250 MILLIGRAM
     Dates: start: 20190601
  4. TRAZODONE [Concomitant]
     Active Substance: TRAZODONE HYDROCHLORIDE
     Dosage: 50 MILLIGRAM
     Dates: start: 20200328
  5. EVOLOCUMAB [Suspect]
     Active Substance: EVOLOCUMAB
     Indication: DYSLIPIDAEMIA
     Dosage: UNK MILLILITER
     Route: 058
     Dates: start: 20160919
  6. NITROGLYCERIN. [Concomitant]
     Active Substance: NITROGLYCERIN
     Dosage: 0.4 MILLIGRAM
     Dates: start: 20170310
  7. REMERON [Concomitant]
     Active Substance: MIRTAZAPINE
     Dosage: 30 MILLIGRAM
     Dates: start: 2000
  8. ENOXAPARIN [Concomitant]
     Active Substance: ENOXAPARIN
     Dosage: UNK
  9. CYANOCOBALAMIN. [Concomitant]
     Active Substance: CYANOCOBALAMIN
     Dosage: 1000 MICROGRAM
     Dates: start: 20180309, end: 202103
  10. INSULIN [Concomitant]
     Active Substance: INSULIN NOS
     Dosage: UNK
  11. LASIX [Concomitant]
     Active Substance: FUROSEMIDE
     Dosage: 40 MILLIGRAM
     Dates: start: 20170328
  12. TRICOR [Concomitant]
     Active Substance: FENOFIBRATE
     Dosage: 145 MILLIGRAM
     Route: 048
     Dates: start: 20130215
  13. SENOKOT [Concomitant]
     Active Substance: SENNOSIDES
     Dosage: 4 UNK
     Dates: start: 202004
  14. FISH OIL [Concomitant]
     Active Substance: FISH OIL
     Dosage: 2400 MILLIGRAM
     Route: 048
     Dates: start: 20170328, end: 202004
  15. FENOFIBRATE. [Concomitant]
     Active Substance: FENOFIBRATE
     Dosage: 54 MILLIGRAM
     Route: 048
     Dates: start: 20171219
  16. WARFARIN [Concomitant]
     Active Substance: WARFARIN
     Dosage: UNK
  17. CLOPIDOGREL [Concomitant]
     Active Substance: CLOPIDOGREL BISULFATE
     Dosage: UNK
  18. ASPIRIN [ACETYLSALICYLIC ACID] [Concomitant]
     Active Substance: ASPIRIN
     Dosage: UNK
  19. POTASSIUM CHLORIDE. [Concomitant]
     Active Substance: POTASSIUM CHLORIDE
     Dosage: 20 MILLIEQUIVALENT
     Dates: start: 20170517
  20. METOPROLOL. [Concomitant]
     Active Substance: METOPROLOL
     Dosage: 25 MILLIGRAM
     Dates: start: 20180723
  21. METOLAZONE. [Concomitant]
     Active Substance: METOLAZONE
     Dosage: 2.5 MILLIGRAM
     Dates: start: 20190604
  22. LACTULOSE. [Concomitant]
     Active Substance: LACTULOSE
     Dosage: 30 MILLILITER
     Dates: start: 20190612, end: 20200415
  23. HUMALOG [Concomitant]
     Active Substance: INSULIN LISPRO
     Dosage: 40 UNK
     Dates: start: 20190620
  24. SPIRONOLACTONE. [Concomitant]
     Active Substance: SPIRONOLACTONE
     Dosage: 25 MILLIGRAM
     Dates: start: 20170412
  25. LEVEMIR [Concomitant]
     Active Substance: INSULIN DETEMIR
     Dosage: 85 UNK
     Dates: start: 20190620
  26. MELATONIN [Concomitant]
     Active Substance: MELATONIN
     Dosage: 10 MILLIGRAM
     Dates: start: 201904
  27. CINNAMON [CINNAMOMUM VERUM] [Concomitant]
     Dosage: 2000 MILLIGRAM
     Dates: start: 201904
  28. ARTIFICIAL TEARS [Concomitant]
     Active Substance: GLYCERIN\HYPROMELLOSES\POLYETHYLENE GLYCOL 400
     Dosage: 1 GTT DROPS
     Dates: start: 20200615
  29. ACETAMINOPHEN. [Concomitant]
     Active Substance: ACETAMINOPHEN
     Dosage: 1000 MILLIGRAM, 1 GRAM
     Dates: start: 20170310, end: 20200518

REACTIONS (3)
  - Cardiac arrest [Fatal]
  - Cellulitis [Recovered/Resolved]
  - Acute kidney injury [Recovered/Resolved]

NARRATIVE: CASE EVENT DATE: 20200515
